FAERS Safety Report 17112355 (Version 1)
Quarter: 2019Q4

REPORT INFORMATION
  Report Type: Spontaneous
  Country: US (occurrence: US)
  Receive Date: 20191204
  Receipt Date: 20191204
  Transmission Date: 20200122
  Serious: Yes (Other)
  Sender: FDA-Public Use
  Company Number: US-ROCHE-2485512

PATIENT
  Age: 64 Year

DRUGS (8)
  1. AVASTIN [Suspect]
     Active Substance: BEVACIZUMAB
     Dosage: ONGOING: NO
     Route: 065
     Dates: start: 20180817, end: 20181130
  2. PACLITAXEL. [Concomitant]
     Active Substance: PACLITAXEL
     Indication: TRIPLE NEGATIVE BREAST CANCER
     Route: 065
     Dates: start: 20180323, end: 20180530
  3. XELODA [Suspect]
     Active Substance: CAPECITABINE
     Indication: TRIPLE NEGATIVE BREAST CANCER
     Route: 048
     Dates: start: 20180817, end: 20181130
  4. GEMCITABINE. [Concomitant]
     Active Substance: GEMCITABINE
     Route: 065
  5. AVASTIN [Suspect]
     Active Substance: BEVACIZUMAB
     Indication: TRIPLE NEGATIVE BREAST CANCER
     Route: 065
     Dates: start: 20180625, end: 20180730
  6. DOCETAXEL. [Concomitant]
     Active Substance: DOCETAXEL
     Dosage: 3 SESSIONS
     Route: 065
     Dates: start: 20191018, end: 20191124
  7. CISPLATINE [Concomitant]
     Active Substance: CISPLATIN
     Route: 065
     Dates: start: 20181214, end: 20190208
  8. NAVELBINE [Concomitant]
     Active Substance: VINORELBINE TARTRATE
     Dosage: THIS TREATMENT STOP BECAUSE AN INSURANCE REFUSAL.
     Route: 065
     Dates: start: 20180625, end: 20180730

REACTIONS (2)
  - Laboratory test abnormal [Unknown]
  - Metastases to lung [Unknown]
